FAERS Safety Report 6981871-1 (Version None)
Quarter: 2010Q3

REPORT INFORMATION
  Report Type: 
  Country: None (occurrence: None)
  Receive Date: 20100914
  Receipt Date: 20091102
  Transmission Date: 20110219
  Serious: No
  Sender: FDA-Public Use
  Company Number: US-PFIZER INC-2009293281

PATIENT
  Sex: Female
  Weight: 58 kg

DRUGS (9)
  1. LYRICA [Suspect]
     Indication: FIBROMYALGIA
     Dosage: 50 MG, 2X/DAY
     Route: 048
     Dates: start: 20091029
  2. ACCOLATE [Concomitant]
     Indication: CHEST PAIN
     Dosage: UNK
  3. ADVAIR DISKUS 100/50 [Concomitant]
     Indication: BLOOD CHOLESTEROL INCREASED
     Dosage: [FLUTICASONE, 500 MG]/[SALMETEROL, 50 MG]
  4. VYTORIN [Concomitant]
     Indication: BLOOD CHOLESTEROL INCREASED
  5. NAPROXEN [Concomitant]
     Indication: PAIN
     Dosage: AS NEEDED
  6. ALLEGRA [Concomitant]
  7. ACTONEL [Concomitant]
  8. FISH OIL [Concomitant]
  9. NITROGLYCERIN [Concomitant]
     Indication: CHEST PAIN

REACTIONS (1)
  - SOMNOLENCE [None]
